FAERS Safety Report 4754610-2 (Version None)
Quarter: 2005Q3

REPORT INFORMATION
  Report Type: 
  Country: None (occurrence: None)
  Receive Date: 20050829
  Receipt Date: 20050823
  Transmission Date: 20060218
  Serious: Yes (Other)
  Sender: FDA-Public Use
  Company Number: BR-GLAXOSMITHKLINE-A0571681A

PATIENT
  Age: 42 Year
  Sex: Female
  Weight: 113 kg

DRUGS (1)
  1. AEROLIN [Suspect]
     Indication: ASTHMA
     Route: 055
     Dates: start: 20050419

REACTIONS (3)
  - ASTHMA [None]
  - DRUG INEFFECTIVE [None]
  - PHARMACEUTICAL PRODUCT COMPLAINT [None]
